FAERS Safety Report 6804690-5 (Version None)
Quarter: 2010Q2

REPORT INFORMATION
  Report Type: 
  Country: None (occurrence: None)
  Receive Date: 20100628
  Receipt Date: 20070427
  Transmission Date: 20101027
  Serious: No
  Sender: FDA-Public Use
  Company Number: US-PFIZER INC-2007034561

PATIENT
  Sex: Female

DRUGS (2)
  1. LINCOMYCIN HCL [Suspect]
  2. CELESTONE [Suspect]

REACTIONS (5)
  - INJECTION SITE HAEMORRHAGE [None]
  - INJECTION SITE PRURITUS [None]
  - INJECTION SITE SWELLING [None]
  - MOVEMENT DISORDER [None]
  - PAIN IN EXTREMITY [None]
